FAERS Safety Report 18014804 (Version 2)
Quarter: 2020Q3

REPORT INFORMATION
  Report Type: Spontaneous
  Country: ES (occurrence: ES)
  Receive Date: 20200713
  Receipt Date: 20200722
  Transmission Date: 20201103
  Serious: Yes (Death, Other)
  Sender: FDA-Public Use
  Company Number: ES-CELGENEUS-ESP-20200702265

PATIENT
  Age: 65 Year
  Sex: Female

DRUGS (15)
  1. EVEROLIMUS. [Concomitant]
     Active Substance: EVEROLIMUS
     Indication: BREAST CANCER METASTATIC
     Dosage: DOSE NOT PROVIDED
     Route: 065
     Dates: start: 201502
  2. ZOLEDRONIC ACID [Concomitant]
     Active Substance: ZOLEDRONIC ACID
     Indication: BREAST CANCER METASTATIC
     Dosage: 4 MILLIGRAM
     Route: 065
     Dates: start: 201407
  3. MYOCET [Concomitant]
     Active Substance: DOXORUBICIN
     Indication: BREAST CANCER METASTATIC
     Dosage: DOSE NOT PROVIDED
     Route: 065
     Dates: start: 201701
  4. VINORELBINE [Concomitant]
     Active Substance: VINORELBINE TARTRATE
     Indication: BREAST CANCER METASTATIC
     Dosage: DOSE NOT PROVIDED
     Route: 065
     Dates: start: 201705
  5. VINORELBINE [Concomitant]
     Active Substance: VINORELBINE TARTRATE
     Dosage: DOSE NOT PROVIDED
     Route: 065
     Dates: start: 201711
  6. LETROZOLE. [Concomitant]
     Active Substance: LETROZOLE
     Indication: BREAST CANCER METASTATIC
     Dosage: DOSE NOT PROVIDED
     Route: 065
     Dates: start: 201502
  7. PALBOCICLIB [Concomitant]
     Active Substance: PALBOCICLIB
     Indication: BREAST CANCER METASTATIC
     Route: 065
     Dates: start: 201711
  8. PALBOCICLIB [Concomitant]
     Active Substance: PALBOCICLIB
     Route: 065
  9. MYOCET [Concomitant]
     Active Substance: DOXORUBICIN
     Dosage: DOSE NOT PROVIDED
     Route: 065
     Dates: start: 201705
  10. EVEROLIMUS. [Concomitant]
     Active Substance: EVEROLIMUS
     Indication: HORMONE THERAPY
     Dosage: DOSE NOT PROVIDED
     Route: 065
     Dates: start: 201502
  11. CAPECITABINE. [Concomitant]
     Active Substance: CAPECITABINE
     Indication: BREAST CANCER METASTATIC
     Dosage: DOSE NOT PROVIDED
     Route: 065
     Dates: start: 201504
  12. FULVESTRANT. [Concomitant]
     Active Substance: FULVESTRANT
     Indication: BREAST CANCER METASTATIC
     Dosage: 500 MILLIGRAM
     Route: 030
     Dates: start: 201711
  13. ABRAXANE [Suspect]
     Active Substance: PACLITAXEL
     Indication: BREAST CANCER METASTATIC
     Dosage: DOSE NOT PROVIDED
     Route: 041
     Dates: start: 201504
  14. ABRAXANE [Suspect]
     Active Substance: PACLITAXEL
     Dosage: DOSE NOT PROVIDED
     Route: 041
     Dates: start: 201701
  15. LETROZOLE. [Concomitant]
     Active Substance: LETROZOLE
     Indication: HORMONE THERAPY
     Dosage: DOSE NOT PROVIDED
     Route: 065
     Dates: start: 201407

REACTIONS (3)
  - Neutropenia [Unknown]
  - Neoplasm progression [Fatal]
  - Asthenia [Unknown]

NARRATIVE: CASE EVENT DATE: 201909
